FAERS Safety Report 8891104 (Version 1)
Quarter: 2012Q4

REPORT INFORMATION
  Report Type: 
  Country: CA (occurrence: CA)
  Receive Date: 20121107
  Receipt Date: 20121107
  Transmission Date: 20130627
  Serious: Yes (Other)
  Sender: FDA-Public Use
  Company Number: CA-UCBSA-070275

PATIENT
  Age: 22 Year
  Sex: Female

DRUGS (3)
  1. VIMPAT [Suspect]
     Indication: GRAND MAL CONVULSION
     Dosage: AT BED TIME
     Dates: start: 20121015, end: 20121022
  2. LAMICTAL [Concomitant]
  3. CARBAMAZEPINE CR [Concomitant]

REACTIONS (1)
  - Grand mal convulsion [Unknown]
